FAERS Safety Report 7136149-2 (Version None)
Quarter: 2010Q4

REPORT INFORMATION
  Report Type: 
  Country: None (occurrence: None)
  Receive Date: 20101205
  Receipt Date: 20101130
  Transmission Date: 20110411
  Serious: Yes (Hospitalization)
  Sender: FDA-Public Use
  Company Number: US-BRISTOL-MYERS SQUIBB COMPANY-15414493

PATIENT
  Age: 75 Year
  Sex: Female

DRUGS (7)
  1. BLINDED: SAXAGLIPTIN [Suspect]
     Indication: TYPE 2 DIABETES MELLITUS
     Dates: start: 20100813
  2. BLINDED: PLACEBO [Suspect]
     Indication: TYPE 2 DIABETES MELLITUS
     Dates: start: 20100813
  3. METFORMIN HCL [Suspect]
     Indication: TYPE 2 DIABETES MELLITUS
     Dates: end: 20101020
  4. LEVEMIR [Suspect]
     Indication: TYPE 2 DIABETES MELLITUS
  5. NOVOLOG [Suspect]
     Indication: TYPE 2 DIABETES MELLITUS
  6. ASPIRIN [Concomitant]
  7. NITRATES [Concomitant]

REACTIONS (4)
  - ACUTE PULMONARY OEDEMA [None]
  - COGNITIVE DISORDER [None]
  - DELIRIUM [None]
  - MENTAL STATUS CHANGES [None]
